FAERS Safety Report 22131834 (Version 1)
Quarter: 2023Q1

REPORT INFORMATION
  Report Type: Spontaneous
  Country: US (occurrence: US)
  Receive Date: 20230323
  Receipt Date: 20230323
  Transmission Date: 20230418
  Serious: No
  Sender: FDA-Public Use
  Company Number: US-FreseniusKabi-FK202303203

PATIENT
  Age: 58 Year
  Sex: Female
  Weight: 103 kg

DRUGS (1)
  1. NEBUPENT [Suspect]
     Active Substance: PENTAMIDINE ISETHIONATE
     Indication: Product used for unknown indication
     Dates: start: 20230306, end: 20230306

REACTIONS (4)
  - Flushing [Recovered/Resolved]
  - Cough [Recovered/Resolved]
  - Wheezing [Recovered/Resolved]
  - Dyspnoea [Recovered/Resolved]

NARRATIVE: CASE EVENT DATE: 20230306
